FAERS Safety Report 13782535 (Version 2)
Quarter: 2017Q3

REPORT INFORMATION
  Report Type: Spontaneous
  Country: JP (occurrence: JP)
  Receive Date: 20170724
  Receipt Date: 20170727
  Transmission Date: 20171127
  Serious: Yes (Hospitalization)
  Sender: FDA-Public Use
  Company Number: JP-PFIZER INC-2017314515

PATIENT
  Age: 86 Year
  Sex: Female

DRUGS (1)
  1. RHEUMATREX [Suspect]
     Active Substance: METHOTREXATE SODIUM
     Indication: RHEUMATOID ARTHRITIS
     Dosage: UNK
     Route: 048

REACTIONS (10)
  - C-reactive protein increased [Unknown]
  - Condition aggravated [Recovering/Resolving]
  - Decreased appetite [Unknown]
  - Pyrexia [Unknown]
  - Malnutrition [Unknown]
  - Stomatitis [Recovering/Resolving]
  - Intentional product misuse [Unknown]
  - Disseminated intravascular coagulation [Unknown]
  - Pancytopenia [Recovered/Resolved]
  - Atrial fibrillation [Unknown]
